FAERS Safety Report 9699778 (Version 2)
Quarter: 2013Q4

REPORT INFORMATION
  Report Type: Spontaneous
  Country: US (occurrence: US)
  Receive Date: 20131120
  Receipt Date: 20131126
  Transmission Date: 20140711
  Serious: No
  Sender: FDA-Public Use
  Company Number: US-GILEAD-2013-0088159

PATIENT
  Sex: Female

DRUGS (2)
  1. LETAIRIS [Suspect]
     Indication: PRODUCT USED FOR UNKNOWN INDICATION
     Dosage: 5 MG, QD
     Dates: start: 20131101
  2. LETAIRIS [Suspect]
     Dosage: 5 MG, QD
     Dates: start: 20131115

REACTIONS (3)
  - Hypotension [Unknown]
  - Unevaluable event [Unknown]
  - Asthenia [Unknown]
